FAERS Safety Report 9350750 (Version 1)
Quarter: 2013Q2

REPORT INFORMATION
  Report Type: Spontaneous
  Country: GB (occurrence: GB)
  Receive Date: 20130617
  Receipt Date: 20130617
  Transmission Date: 20140414
  Serious: Yes (Other)
  Sender: FDA-Public Use
  Company Number: GB-JNJFOC-20130603202

PATIENT
  Age: 12 Year
  Sex: Female

DRUGS (1)
  1. NIZORAL [Suspect]
     Indication: DANDRUFF
     Route: 061

REACTIONS (2)
  - Hair texture abnormal [Unknown]
  - Hair disorder [Unknown]
